FAERS Safety Report 9608172 (Version 3)
Quarter: 2013Q4

REPORT INFORMATION
  Report Type: Spontaneous
  Country: US (occurrence: US)
  Receive Date: 20131009
  Receipt Date: 20131028
  Transmission Date: 20140711
  Serious: No
  Sender: FDA-Public Use
  Company Number: US-PFIZER INC-2013284578

PATIENT
  Sex: Male

DRUGS (2)
  1. ADVIL [Suspect]
     Indication: HEADACHE
     Dosage: UNK
  2. ADVIL [Suspect]
     Indication: MIGRAINE

REACTIONS (2)
  - Extra dose administered [Unknown]
  - Drug ineffective [Unknown]
